FAERS Safety Report 8019403-1 (Version None)
Quarter: 2012Q1

REPORT INFORMATION
  Report Type: 
  Country: None (occurrence: None)
  Receive Date: 20120103
  Receipt Date: 20111221
  Transmission Date: 20120608
  Serious: Yes (Other)
  Sender: FDA-Public Use
  Company Number: PHHY2011US111678

PATIENT
  Sex: Male

DRUGS (3)
  1. CYCLOSPORINE [Suspect]
     Dosage: 50 MG, DAILY
     Route: 048
     Dates: start: 20100501
  2. CYCLOSPORINE [Suspect]
     Dosage: 100 MG, DAILY
     Route: 048
     Dates: start: 20101201
  3. CYCLOSPORINE [Suspect]
     Dosage: 150 MG, BID
     Route: 048

REACTIONS (15)
  - APLASTIC ANAEMIA [None]
  - SERUM FERRITIN INCREASED [None]
  - BIPOLAR DISORDER [None]
  - HYPERHIDROSIS [None]
  - MYELODYSPLASTIC SYNDROME [None]
  - BRONCHITIS [None]
  - MARROW HYPERPLASIA [None]
  - IRON OVERLOAD [None]
  - MEGAKARYOCYTES DECREASED [None]
  - DYSPNOEA [None]
  - ERYTHROPOIESIS ABNORMAL [None]
  - CHEST PAIN [None]
  - LIGHT CHAIN ANALYSIS INCREASED [None]
  - SINUS TACHYCARDIA [None]
  - OBESITY [None]
